FAERS Safety Report 24336475 (Version 1)
Quarter: 2024Q3

REPORT INFORMATION
  Report Type: Spontaneous
  Country: BR (occurrence: BR)
  Receive Date: 20240919
  Receipt Date: 20240919
  Transmission Date: 20241017
  Serious: No
  Sender: ROCHE
  Company Number: BR-ROCHE-3562223

PATIENT
  Sex: Female

DRUGS (2)
  1. TAMIFLU [Suspect]
     Active Substance: OSELTAMIVIR PHOSPHATE
     Indication: Influenza
     Dosage: ONE CAPSULE EVERY 12 HOURS FOR 5 DAYS
     Route: 065
     Dates: start: 20240506
  2. TAMIFLU [Suspect]
     Active Substance: OSELTAMIVIR PHOSPHATE
     Dosage: ONE CAPSULE EVERY 12 HOURS FOR 5 DAYS
     Route: 065
     Dates: start: 20231029

REACTIONS (9)
  - Malaise [Recovered/Resolved]
  - Vomiting [Recovered/Resolved]
  - Dizziness [Recovered/Resolved]
  - Diarrhoea [Recovering/Resolving]
  - Abdominal pain [Not Recovered/Not Resolved]
  - Abdominal pain upper [Recovering/Resolving]
  - Headache [Recovering/Resolving]
  - Nausea [Not Recovered/Not Resolved]
  - Product quality issue [Unknown]
